FAERS Safety Report 11696006 (Version 2)
Quarter: 2015Q4

REPORT INFORMATION
  Report Type: Report from Study
  Country: US (occurrence: US)
  Receive Date: 20151104
  Receipt Date: 20151106
  Transmission Date: 20160304
  Serious: No
  Sender: FDA-Public Use
  Company Number: US-JAZZ-2015-US-018027

PATIENT
  Age: 33 Year
  Sex: Female

DRUGS (6)
  1. DEPAKOTE [Concomitant]
     Active Substance: DIVALPROEX SODIUM
  2. DISULFIRAM. [Concomitant]
     Active Substance: DISULFIRAM
  3. LITHIUM. [Concomitant]
     Active Substance: LITHIUM
  4. SYNTHROID [Concomitant]
     Active Substance: LEVOTHYROXINE SODIUM
  5. KLONOPIN [Concomitant]
     Active Substance: CLONAZEPAM
  6. CLOZAPINE. [Suspect]
     Active Substance: CLOZAPINE

REACTIONS (1)
  - Neutropenia [Recovered/Resolved]

NARRATIVE: CASE EVENT DATE: 20141226
